FAERS Safety Report 8139218-3 (Version None)
Quarter: 2012Q1

REPORT INFORMATION
  Report Type: 
  Country: None (occurrence: None)
  Receive Date: 20120215
  Receipt Date: 20120209
  Transmission Date: 20120608
  Serious: Yes (Other)
  Sender: FDA-Public Use
  Company Number: US-PFIZER INC-2012016509

PATIENT
  Sex: Female
  Weight: 18 kg

DRUGS (3)
  1. PREDNISONE [Concomitant]
     Indication: HYPOPITUITARISM
     Dosage: 0.4 MG, 2X/DAY
  2. GENOTROPIN [Suspect]
     Indication: HYPOPITUITARISM
     Dosage: 0.9 MG, DAILY
     Dates: start: 20060101
  3. SYNTHROID [Concomitant]
     Indication: HYPOPITUITARISM
     Dosage: 50 UG, DAILY

REACTIONS (2)
  - CONVULSION [None]
  - CIRCUMSTANCE OR INFORMATION CAPABLE OF LEADING TO MEDICATION ERROR [None]
